APPROVED DRUG PRODUCT: FLO-PRED
Active Ingredient: PREDNISOLONE ACETATE
Strength: EQ 15MG BASE/5ML
Dosage Form/Route: SUSPENSION;ORAL
Application: N022067 | Product #002
Applicant: SUN PHARMA CANADA INC
Approved: Jan 17, 2008 | RLD: No | RS: No | Type: DISCN

PATENTS:
Patent 7799331 | Expires: Oct 11, 2028
Patent 7799331 | Expires: Oct 11, 2028